FAERS Safety Report 16972008 (Version 2)
Quarter: 2019Q4

REPORT INFORMATION
  Report Type: Spontaneous
  Country: JP (occurrence: JP)
  Receive Date: 20191029
  Receipt Date: 20191125
  Transmission Date: 20200122
  Serious: Yes (Death, Hospitalization, Other)
  Sender: FDA-Public Use
  Company Number: JP-ELI_LILLY_AND_COMPANY-JP201910011388

PATIENT
  Age: 58 Year
  Sex: Female

DRUGS (2)
  1. ERBITUX [Suspect]
     Active Substance: CETUXIMAB
     Indication: SQUAMOUS CELL CARCINOMA OF HEAD AND NECK
     Dosage: UNK, UNKNOWN
     Route: 041
  2. PACLITAXEL. [Concomitant]
     Active Substance: PACLITAXEL
     Indication: SQUAMOUS CELL CARCINOMA OF HEAD AND NECK
     Dosage: UNK, UNKNOWN
     Route: 065

REACTIONS (5)
  - General physical health deterioration [Fatal]
  - Metastases to lymph nodes [Unknown]
  - Off label use [Unknown]
  - Malignant neoplasm progression [Fatal]
  - Metastases to skin [Unknown]

NARRATIVE: CASE EVENT DATE: 20190731
